FAERS Safety Report 8426219 (Version 2)
Quarter: 2012Q4

REPORT INFORMATION
  Report Type: 
  Country: US (occurrence: US)
  Receive Date: 20120224
  Receipt Date: 20121015
  Transmission Date: 20130627
  Serious: Yes (Hospitalization)
  Sender: FDA-Public Use
  Company Number: US-ASTRAZENECA-2011SE78197

PATIENT
  Age: 78 Year
  Sex: Female
  Weight: 95.3 kg

DRUGS (15)
  1. NEXIUM [Suspect]
     Route: 048
  2. TOPROL XL [Suspect]
     Indication: ANGINA PECTORIS
     Dosage: TAKING HALF THE DOSE
     Route: 048
  3. TOPROL XL [Suspect]
     Indication: HYPERTENSION
     Dosage: TAKING HALF THE DOSE
     Route: 048
  4. TOPROL XL [Suspect]
     Indication: ANGINA PECTORIS
     Route: 048
  5. TOPROL XL [Suspect]
     Indication: HYPERTENSION
     Route: 048
  6. TOPROL XL [Suspect]
     Indication: ANGINA PECTORIS
     Route: 048
  7. TOPROL XL [Suspect]
     Indication: HYPERTENSION
     Route: 048
  8. TOPROL XL [Suspect]
     Indication: ANGINA PECTORIS
     Route: 048
  9. TOPROL XL [Suspect]
     Indication: HYPERTENSION
     Route: 048
  10. TOPROL XL [Suspect]
     Indication: ANGINA PECTORIS
     Route: 048
  11. TOPROL XL [Suspect]
     Indication: HYPERTENSION
     Route: 048
  12. PLAVIX [Concomitant]
  13. LIPITOR [Concomitant]
  14. MOEXIPRIL [Concomitant]
  15. STOOL SOFTENER [Concomitant]

REACTIONS (8)
  - Hypertensive emergency [Unknown]
  - Hypertension [Unknown]
  - Cardiac disorder [Unknown]
  - Weight decreased [Unknown]
  - Multiple allergies [Unknown]
  - Gait disturbance [Unknown]
  - Oral herpes [Unknown]
  - Intentional drug misuse [Unknown]
